FAERS Safety Report 9229897 (Version 1)
Quarter: 2013Q2

REPORT INFORMATION
  Report Type: Spontaneous
  Country: US (occurrence: None)
  Receive Date: 20130412
  Receipt Date: 20130412
  Transmission Date: 20140414
  Serious: No
  Sender: FDA-Public Use
  Company Number: None

PATIENT
  Age: 64 Year
  Sex: Female
  Weight: 88.45 kg

DRUGS (2)
  1. ATORVASTATIN 10 MG WATSON [Suspect]
     Indication: HYPERCHOLESTEROLAEMIA
     Dates: start: 20130101, end: 20130214
  2. CRESTOR [Suspect]
     Route: 048
     Dates: start: 20130215, end: 20130315

REACTIONS (1)
  - Rash [None]
